FAERS Safety Report 5365161-9 (Version None)
Quarter: 2007Q2

REPORT INFORMATION
  Report Type: 
  Country: None (occurrence: None)
  Receive Date: 20070530
  Receipt Date: 20070119
  Transmission Date: 20071010
  Serious: No
  Sender: FDA-Public Use
  Company Number: 2006PV018325

PATIENT
  Age: 64 Year
  Sex: Female
  Weight: 83.9154 kg

DRUGS (6)
  1. BYETTA [Suspect]
     Indication: DIABETES MELLITUS NON-INSULIN-DEPENDENT
     Dosage: 5 MCG; BID; SC; 10 MCG; BID; SC; 5 MCG; BID; SC
     Route: 058
     Dates: start: 20060501, end: 20070117
  2. BYETTA [Suspect]
     Indication: DIABETES MELLITUS NON-INSULIN-DEPENDENT
     Dosage: 5 MCG; BID; SC; 10 MCG; BID; SC; 5 MCG; BID; SC
     Route: 058
     Dates: start: 20060712
  3. BYETTA [Suspect]
     Indication: DIABETES MELLITUS NON-INSULIN-DEPENDENT
     Dosage: 5 MCG; BID; SC; 10 MCG; BID; SC; 5 MCG; BID; SC
     Route: 058
     Dates: start: 20070118
  4. NEXIUM [Concomitant]
  5. GLUCOVANCE [Concomitant]
  6. ACTOS [Concomitant]

REACTIONS (3)
  - DECREASED APPETITE [None]
  - DYSPEPSIA [None]
  - WEIGHT DECREASED [None]
